FAERS Safety Report 7823895-8 (Version None)
Quarter: 2011Q4

REPORT INFORMATION
  Report Type: 
  Country: None (occurrence: None)
  Receive Date: 20111019
  Receipt Date: 20111017
  Transmission Date: 20120403
  Serious: Yes (Life-Threatening)
  Sender: FDA-Public Use
  Company Number: AU-B.I. PHARMACEUTICALS,INC./RIDGEFIELD-2011-AU-01708AU

PATIENT
  Sex: Male
  Weight: 90 kg

DRUGS (5)
  1. NITROLINGUAL [Concomitant]
  2. ACETAMINOPHEN W/ CODEINE [Concomitant]
  3. PRADAXA [Suspect]
     Indication: THROMBOSIS PROPHYLAXIS
     Dosage: 300 MG
     Dates: start: 20110617, end: 20110927
  4. LIPITOR [Concomitant]
     Dosage: 80 MG
  5. PANADOL OSTEO [Concomitant]

REACTIONS (3)
  - HEADACHE [None]
  - SUBDURAL HAEMORRHAGE [None]
  - LOSS OF CONSCIOUSNESS [None]
